FAERS Safety Report 4606766-X (Version None)
Quarter: 2005Q1

REPORT INFORMATION
  Report Type: 
  Country: None (occurrence: None)
  Receive Date: 20050309
  Receipt Date: 20050216
  Transmission Date: 20050727
  Serious: No
  Sender: FDA-Public Use
  Company Number: USA050291406

PATIENT
  Age: 34 Year
  Sex: Male

DRUGS (1)
  1. STRATTERA [Suspect]

REACTIONS (2)
  - HEPATIC ENZYME INCREASED [None]
  - VOMITING [None]
